FAERS Safety Report 8726395 (Version 3)
Quarter: 2012Q4

REPORT INFORMATION
  Report Type: Spontaneous
  Country: US (occurrence: None)
  Receive Date: 20120730
  Receipt Date: 20120828
  Transmission Date: 20130627
  Serious: Yes (Other)
  Sender: FDA-Public Use
  Company Number: 2012P1049506

PATIENT
  Age: 47 Year
  Sex: Female
  Weight: 83.92 kg

DRUGS (10)
  1. FENTANYL [Suspect]
     Indication: FRACTURE PAIN
     Dosage: 1 PATCH;Q3D;TDER ; 1 PATCH;Q3D;TDER
     Route: 062
     Dates: start: 201205, end: 201207
  2. FENTANYL [Suspect]
     Indication: SYSTEMIC LUPUS ERYTHEMATOSUS
     Dosage: 1 PATCH;Q3D;TDER ; 1 PATCH;Q3D;TDER
     Route: 062
     Dates: start: 201205, end: 201207
  3. FENTANYL [Suspect]
     Indication: PAIN
     Dosage: 1 PATCH;Q3D;TDER ; 1 PATCH;Q3D;TDER
     Route: 062
     Dates: start: 201205, end: 201207
  4. FENTANYL [Suspect]
     Indication: FRACTURE PAIN
     Dosage: 1 PATCH;Q3D;TDER ; 1 PATCH;Q3D;TDER
     Route: 062
     Dates: start: 20120713
  5. FENTANYL [Suspect]
     Indication: SYSTEMIC LUPUS ERYTHEMATOSUS
     Dosage: 1 PATCH;Q3D;TDER ; 1 PATCH;Q3D;TDER
     Route: 062
     Dates: start: 20120713
  6. FENTANYL [Suspect]
     Indication: PAIN
     Dosage: 1 PATCH;Q3D;TDER ; 1 PATCH;Q3D;TDER
     Route: 062
     Dates: start: 20120713
  7. FENTANYL [Suspect]
     Indication: PAIN
     Dates: start: 201207, end: 20120713
  8. KEPPRA [Concomitant]
  9. OXYCODONE [Concomitant]
  10. PHENERGAN [Concomitant]

REACTIONS (18)
  - Convulsion [None]
  - Incorrect drug administration duration [None]
  - Breakthrough pain [None]
  - Nausea [None]
  - Urinary incontinence [None]
  - Wrong technique in drug usage process [None]
  - Device leakage [None]
  - Application site cold feeling [None]
  - Product adhesion issue [None]
  - Unintentional medical device removal [None]
  - Application site rash [None]
  - Application site pruritus [None]
  - Application site urticaria [None]
  - Hyperhidrosis [None]
  - Cough [None]
  - Rib fracture [None]
  - Product substitution issue [None]
  - Product quality issue [None]
